FAERS Safety Report 5245778-2 (Version None)
Quarter: 2007Q1

REPORT INFORMATION
  Report Type: 
  Country: None (occurrence: None)
  Receive Date: 20070223
  Receipt Date: 20070215
  Transmission Date: 20070707
  Serious: Yes (Death)
  Sender: FDA-Public Use
  Company Number: JP-PFIZER INC-2007013095

PATIENT
  Age: 65 Year
  Sex: Female

DRUGS (8)
  1. ALDACTONE [Suspect]
     Route: 048
     Dates: start: 20070104, end: 20070123
  2. SUNRYTHM [Suspect]
  3. LANIRAPID [Suspect]
  4. ASPIRIN [Concomitant]
  5. NITROGLYCERIN [Concomitant]
  6. DIART [Concomitant]
  7. ALLOPURINOL SODIUM [Concomitant]
  8. MAGNESIUM OXIDE [Concomitant]

REACTIONS (3)
  - LIVER DISORDER [None]
  - RENAL DISORDER [None]
  - VENTRICULAR FIBRILLATION [None]
